FAERS Safety Report 26077313 (Version 1)
Quarter: 2025Q4

REPORT INFORMATION
  Report Type: Spontaneous
  Country: US (occurrence: US)
  Receive Date: 20251121
  Receipt Date: 20251121
  Transmission Date: 20260118
  Serious: Yes (Death, Other)
  Sender: PURDUE
  Company Number: US-PURDUE PHARMA-USA-2025-0322274

PATIENT
  Age: 1 Year
  Sex: Male
  Weight: 5 kg

DRUGS (1)
  1. OXYCODONE HYDROCHLORIDE [Suspect]
     Active Substance: OXYCODONE HYDROCHLORIDE
     Indication: Product used for unknown indication
     Dosage: UNK
     Route: 064

REACTIONS (12)
  - Death [Fatal]
  - Coma neonatal [Unknown]
  - Foetal exposure during delivery [Unknown]
  - Peripheral coldness [Unknown]
  - Cough [Unknown]
  - Malnutrition [Unknown]
  - Scratch [Unknown]
  - Scar [Unknown]
  - Contusion [Unknown]
  - Short stature [Unknown]
  - Dyspnoea [Unknown]
  - Accidental exposure to product by child [Unknown]

NARRATIVE: CASE EVENT DATE: 20251117
